FAERS Safety Report 8799119 (Version 1)
Quarter: 2012Q4

REPORT INFORMATION
  Report Type: Spontaneous
  Country: US (occurrence: None)
  Receive Date: 20120914
  Receipt Date: 20120914
  Transmission Date: 20130627
  Serious: Yes (Other)
  Sender: FDA-Public Use
  Company Number: 1404226

PATIENT
  Age: 36 Year
  Sex: Male

DRUGS (1)
  1. MORPHINE SULFATE [Suspect]
     Dosage: 1-1.5 mg via PCA with 8-10 minute lockout, (unknown)
     Route: 050
     Dates: start: 20120808, end: 20120809

REACTIONS (4)
  - Brain injury [None]
  - Snoring [None]
  - Unresponsive to stimuli [None]
  - Hypotension [None]
